FAERS Safety Report 9914181 (Version 3)
Quarter: 2014Q1

REPORT INFORMATION
  Report Type: Spontaneous
  Country: BR (occurrence: BR)
  Receive Date: 20140220
  Receipt Date: 20140314
  Transmission Date: 20141002
  Serious: Yes (Hospitalization, Other)
  Sender: FDA-Public Use
  Company Number: BR-ASTRAZENECA-2014SE02182

PATIENT
  Age: 24 Year
  Sex: Female
  Weight: 76 kg

DRUGS (16)
  1. SELOKEN [Suspect]
     Indication: HYPERTENSION
     Route: 048
     Dates: start: 2001
  2. OMEPRAZOLE [Suspect]
     Indication: ABDOMINAL DISCOMFORT
     Route: 048
  3. CIMZIA [Suspect]
     Indication: RHEUMATOID ARTHRITIS
     Dosage: 200 MG/ML
     Route: 058
     Dates: start: 20131107
  4. CIMZIA [Suspect]
     Indication: RHEUMATOID ARTHRITIS
     Dosage: 200 MG/ML
     Route: 058
     Dates: start: 20140210
  5. ACETAMINOPHEN [Suspect]
     Route: 048
     Dates: start: 201401, end: 201401
  6. ETANERCEPTE [Suspect]
     Indication: RHEUMATOID ARTHRITIS
     Dosage: ONCE A WEEK
     Route: 058
     Dates: start: 2011, end: 201303
  7. NIMESULIDE [Suspect]
     Route: 048
     Dates: start: 201401, end: 201401
  8. PREDNISOLONE [Suspect]
     Route: 061
     Dates: start: 201401, end: 201401
  9. LEVOID [Concomitant]
     Indication: THYROID DISORDER
     Route: 048
     Dates: start: 2001
  10. DEFLAZACORT [Concomitant]
     Indication: RHEUMATOID ARTHRITIS
     Route: 048
     Dates: start: 2005, end: 201402
  11. METHOTREXATE [Concomitant]
     Indication: RHEUMATOID ARTHRITIS
     Route: 042
     Dates: start: 2001
  12. METHOTREXATE [Concomitant]
     Indication: RHEUMATOID ARTHRITIS
     Dosage: WEEK
     Route: 058
     Dates: start: 2001
  13. METHOTREXATE [Concomitant]
     Indication: RHEUMATOID ARTHRITIS
     Route: 058
  14. DICLOFENAC [Concomitant]
     Indication: PAIN
  15. FOLIC ACID [Concomitant]
  16. UNKNOWN [Concomitant]
     Indication: LABYRINTHITIS

REACTIONS (6)
  - Rheumatoid arthritis [Recovering/Resolving]
  - Haemorrhoids [Recovered/Resolved]
  - Labyrinthitis [Recovered/Resolved]
  - Pain in extremity [Not Recovered/Not Resolved]
  - Local swelling [Not Recovered/Not Resolved]
  - Drug dose omission [Not Recovered/Not Resolved]
